FAERS Safety Report 8473829-0 (Version None)
Quarter: 2012Q2

REPORT INFORMATION
  Report Type: 
  Country: None (occurrence: None)
  Receive Date: 20120628
  Receipt Date: 20111212
  Transmission Date: 20120825
  Serious: Yes (Other)
  Sender: FDA-Public Use
  Company Number: US-MYLANLABS-2011S1025396

PATIENT
  Age: 48 Year
  Sex: Male

DRUGS (4)
  1. CELEXA [Concomitant]
  2. LORAZEPAM [Concomitant]
  3. CLOZAPINE [Suspect]
     Indication: SCHIZOPHRENIA
     Route: 048
     Dates: start: 20110301, end: 20111206
  4. FENOFIBRATE [Concomitant]

REACTIONS (1)
  - GRANULOCYTOPENIA [None]
